FAERS Safety Report 14989136 (Version 1)
Quarter: 2018Q2

REPORT INFORMATION
  Report Type: Spontaneous
  Country: US (occurrence: US)
  Receive Date: 20180520
  Receipt Date: 20180520
  Transmission Date: 20180711
  Serious: Yes (Other)
  Sender: FDA-Public Use
  Company Number: None

PATIENT
  Age: 48 Year
  Sex: Female
  Weight: 60.75 kg

DRUGS (8)
  1. B COMPLEX VITAMIN [Concomitant]
  2. BENADRYL [Concomitant]
     Active Substance: DIPHENHYDRAMINE HYDROCHLORIDE
  3. ZERTYEC [Concomitant]
  4. DYSPORT [Suspect]
     Active Substance: ABOBOTULINUMTOXINA
     Indication: SKIN WRINKLING
     Route: 030
     Dates: start: 20180224, end: 20180224
  5. XANAX [Concomitant]
     Active Substance: ALPRAZOLAM
  6. ALLEGRA [Concomitant]
     Active Substance: FEXOFENADINE HYDROCHLORIDE
  7. MULTI VITAMIN [Concomitant]
     Active Substance: VITAMINS
  8. TUNERIC [Concomitant]

REACTIONS (14)
  - Anxiety [None]
  - Nausea [None]
  - Head discomfort [None]
  - Chest discomfort [None]
  - Hypoaesthesia [None]
  - Loss of personal independence in daily activities [None]
  - Pain [None]
  - Diarrhoea [None]
  - Eye swelling [None]
  - Dysphagia [None]
  - Brow ptosis [None]
  - Infection [None]
  - Ear irrigation [None]
  - Swelling face [None]

NARRATIVE: CASE EVENT DATE: 20180301
